FAERS Safety Report 6943809-2 (Version None)
Quarter: 2010Q3

REPORT INFORMATION
  Report Type: 
  Country: None (occurrence: None)
  Receive Date: 20100826
  Receipt Date: 20100817
  Transmission Date: 20110219
  Serious: Yes (Hospitalization)
  Sender: FDA-Public Use
  Company Number: A0809343A

PATIENT
  Age: 77 Year
  Sex: Female
  Weight: 81.8 kg

DRUGS (11)
  1. AVANDIA [Suspect]
     Dosage: 4MG PER DAY
     Route: 048
     Dates: start: 20060118, end: 20080101
  2. AVANDAMET [Suspect]
     Route: 048
     Dates: start: 20031111, end: 20060118
  3. ROSIGLITAZONE MALEATE [Suspect]
     Route: 048
     Dates: start: 20080101, end: 20080101
  4. LANTUS [Concomitant]
  5. METFORMIN HCL [Concomitant]
  6. SYNTHROID [Concomitant]
  7. DILTIAZEM [Concomitant]
  8. ZESTORETIC [Concomitant]
  9. LOVASTATIN [Concomitant]
  10. COLACE [Concomitant]
  11. MOBIC [Concomitant]

REACTIONS (12)
  - CARDIAC ARREST [None]
  - CARDIAC FAILURE CONGESTIVE [None]
  - CARDIAC PACEMAKER INSERTION [None]
  - CEREBROVASCULAR ACCIDENT [None]
  - CONGESTIVE CARDIOMYOPATHY [None]
  - FLUID OVERLOAD [None]
  - FLUID RETENTION [None]
  - HEPATIC FAILURE [None]
  - LIVER INJURY [None]
  - SUPRAVENTRICULAR TACHYCARDIA [None]
  - TORSADE DE POINTES [None]
  - TRANSIENT ISCHAEMIC ATTACK [None]
